FAERS Safety Report 8911187 (Version 2)
Quarter: 2013Q1

REPORT INFORMATION
  Report Type: Spontaneous
  Country: IT (occurrence: IT)
  Receive Date: 20121116
  Receipt Date: 20130103
  Transmission Date: 20140127
  Serious: Yes (Hospitalization, Disabling, Other)
  Sender: FDA-Public Use
  Company Number: IT-BRISTOL-MYERS SQUIBB COMPANY-17111113

PATIENT
  Age: 74 Year
  Sex: Male

DRUGS (2)
  1. COUMADIN TABS 5 MG [Suspect]
     Indication: ATRIAL FIBRILLATION
     Route: 048
     Dates: start: 20090101, end: 20120704
  2. ENALAPRIL MALEATE [Concomitant]
     Dosage: TABLET
     Route: 048

REACTIONS (2)
  - Cerebral haemorrhage [Recovered/Resolved with Sequelae]
  - Type 2 diabetes mellitus [Unknown]
